FAERS Safety Report 5123017-0 (Version None)
Quarter: 2006Q4

REPORT INFORMATION
  Report Type: 
  Country: None (occurrence: None)
  Receive Date: 20061005
  Receipt Date: 20060919
  Transmission Date: 20070319
  Serious: Yes (Hospitalization)
  Sender: FDA-Public Use
  Company Number: US200609006460

PATIENT
  Age: 14 Year
  Sex: Female
  Weight: 93.4 kg

DRUGS (6)
  1. ZYPREXA [Suspect]
     Dosage: SEE IMAGE
     Dates: start: 19991201, end: 20000201
  2. ZYPREXA [Suspect]
     Dosage: SEE IMAGE
     Dates: start: 20000301, end: 20011101
  3. ZYPREXA [Suspect]
     Dosage: SEE IMAGE
     Dates: start: 20011101, end: 20021201
  4. ZYPREXA [Suspect]
     Dosage: SEE IMAGE
     Dates: start: 20021204, end: 20021219
  5. FLUOXETINE /N/A/ (FLUOXETINE) [Concomitant]
  6. MEDROXYPROGRESTERONE (MEDROXYPROGESTERONE) [Concomitant]

REACTIONS (9)
  - AGGRESSION [None]
  - CONDITION AGGRAVATED [None]
  - DEPRESSION [None]
  - DIABETES MELLITUS [None]
  - MENTAL DISORDER [None]
  - METABOLIC DISORDER [None]
  - OBESITY [None]
  - SUICIDAL IDEATION [None]
  - VISION BLURRED [None]
